FAERS Safety Report 4963745-0 (Version None)
Quarter: 2006Q2

REPORT INFORMATION
  Report Type: 
  Country: None (occurrence: None)
  Receive Date: 20060405
  Receipt Date: 20060327
  Transmission Date: 20061013
  Serious: Yes (Hospitalization)
  Sender: FDA-Public Use
  Company Number: FR-ABBOTT-06P-056-0329099-00

PATIENT
  Age: 88 Year
  Sex: Female
  Weight: 60 kg

DRUGS (22)
  1. LIPANTHYL TABLETS [Suspect]
     Indication: LIPID METABOLISM DISORDER
     Route: 048
     Dates: end: 20060215
  2. SPIRONOLACTONE [Concomitant]
     Indication: DRUG USE FOR UNKNOWN INDICATION
     Dates: end: 20060215
  3. SPIRONOLACTONE [Concomitant]
  4. ALTIZIDE [Concomitant]
     Indication: DRUG USE FOR UNKNOWN INDICATION
     Dates: end: 20060215
  5. ALTIZIDE [Concomitant]
  6. FUROSEMIDE [Concomitant]
     Indication: DRUG USE FOR UNKNOWN INDICATION
     Dates: end: 20060215
  7. FUROSEMIDE [Concomitant]
  8. BUFLOMEDIL [Concomitant]
     Indication: DRUG USE FOR UNKNOWN INDICATION
     Dates: end: 20060215
  9. BUFLOMEDIL [Concomitant]
  10. LEVOTHYROXINE SODIUM [Concomitant]
     Indication: DRUG USE FOR UNKNOWN INDICATION
  11. FERROUS SULFATE TAB [Concomitant]
     Indication: DRUG USE FOR UNKNOWN INDICATION
     Dates: end: 20060215
  12. FERROUS SULFATE TAB [Concomitant]
  13. ACETAMINOPHEN [Concomitant]
     Indication: DRUG USE FOR UNKNOWN INDICATION
     Dates: end: 20060215
  14. ACETAMINOPHEN [Concomitant]
  15. MORPHINE SULFATE [Concomitant]
     Indication: DRUG USE FOR UNKNOWN INDICATION
     Dates: end: 20060215
  16. MORPHINE SULFATE [Concomitant]
  17. ZOPICLONE [Concomitant]
     Indication: DRUG USE FOR UNKNOWN INDICATION
     Dates: end: 20060215
  18. ZOPICLONE [Concomitant]
  19. NULYTELY [Concomitant]
     Indication: DRUG USE FOR UNKNOWN INDICATION
     Dates: end: 20060215
  20. NULYTELY [Concomitant]
  21. ALOPLASTINE [Concomitant]
     Indication: DRUG USE FOR UNKNOWN INDICATION
     Dates: end: 20060215
  22. ALOPLASTINE [Concomitant]

REACTIONS (7)
  - CARDIAC DISORDER [None]
  - CARDIOMEGALY [None]
  - CHEST PAIN [None]
  - EJECTION FRACTION DECREASED [None]
  - MALAISE [None]
  - MYOCARDIAL INFARCTION [None]
  - SYNCOPE [None]
